FAERS Safety Report 21670709 (Version 1)
Quarter: 2022Q4

REPORT INFORMATION
  Report Type: Spontaneous
  Country: DE (occurrence: DE)
  Receive Date: 20221202
  Receipt Date: 20221202
  Transmission Date: 20230113
  Serious: Yes (Other)
  Sender: FDA-Public Use
  Company Number: None

PATIENT
  Age: 60 Year
  Sex: Male

DRUGS (13)
  1. PREDNISOLONE [Suspect]
     Active Substance: PREDNISOLONE
     Indication: Mantle cell lymphoma stage IV
     Dosage: 3 CYCLICAL (MAXI-CHOP )
     Route: 065
     Dates: start: 2016
  2. ETOPOSIDE [Suspect]
     Active Substance: ETOPOSIDE
     Indication: Mantle cell lymphoma stage IV
     Dosage: UNK, CYCLICAL (HIGH-DOSE BEAM )
     Route: 065
     Dates: start: 2016
  3. DOXORUBICIN [Suspect]
     Active Substance: DOXORUBICIN
     Indication: Mantle cell lymphoma stage IV
     Dosage: 3 CYCLICAL
     Route: 065
     Dates: start: 2016
  4. MELPHALAN [Suspect]
     Active Substance: MELPHALAN
     Indication: Mantle cell lymphoma stage IV
     Dosage: UNK UNK, CYCLICAL (HIGH-DOSE BEAM )
     Route: 065
     Dates: start: 2016
  5. CYCLOPHOSPHAMIDE [Suspect]
     Active Substance: CYCLOPHOSPHAMIDE
     Indication: Mantle cell lymphoma stage IV
     Dosage: 3, CYCLICAL (MAXI-CHOP )
     Route: 065
     Dates: start: 2016
  6. CARMUSTINE [Suspect]
     Active Substance: CARMUSTINE
     Indication: Mantle cell lymphoma stage IV
     Dosage: UNK, CYCLICAL (HIGH-DOSE BEAM (BCNU)
     Route: 065
     Dates: start: 2016
  7. RITUXIMAB [Suspect]
     Active Substance: RITUXIMAB
     Indication: Mantle cell lymphoma stage IV
     Dosage: 3 CYCLICAL
     Route: 065
     Dates: start: 2016
  8. RITUXIMAB [Suspect]
     Active Substance: RITUXIMAB
     Dosage: 1000 MG/M2, (EVERY EIGHT WEEKS )
     Route: 065
  9. CYTARABINE [Suspect]
     Active Substance: CYTARABINE
     Indication: Mantle cell lymphoma stage IV
     Dosage: 3 UNK, CYCLICAL (HIGH-DOSE)
     Route: 065
     Dates: start: 2016
  10. CYTARABINE [Suspect]
     Active Substance: CYTARABINE
     Dosage: UNK, CYCLICAL (HIGH-DOSE BEAM )
     Route: 065
     Dates: start: 2016
  11. VINCRISTINE [Suspect]
     Active Substance: VINCRISTINE
     Indication: Mantle cell lymphoma stage IV
     Dosage: 3, CYCLICAL (MAXI-CHOP )
     Route: 065
     Dates: start: 2016
  12. ADALIMUMAB [Concomitant]
     Active Substance: ADALIMUMAB
     Indication: Psoriatic arthropathy
     Dosage: UNK
     Route: 065
     Dates: start: 2012
  13. ADALIMUMAB [Concomitant]
     Active Substance: ADALIMUMAB
     Indication: Psoriasis

REACTIONS (8)
  - Retinal haemorrhage [Recovered/Resolved]
  - Pancytopenia [Recovered/Resolved]
  - Psoriasis [Recovered/Resolved]
  - Febrile neutropenia [Recovered/Resolved]
  - Herpes zoster [Recovered/Resolved]
  - Aspergillus infection [Recovered/Resolved]
  - Bronchopulmonary aspergillosis [Recovered/Resolved]
  - Off label use [Unknown]

NARRATIVE: CASE EVENT DATE: 20160101
